FAERS Safety Report 9923428 (Version 2)
Quarter: 2014Q1

REPORT INFORMATION
  Report Type: Spontaneous
  Country: US (occurrence: US)
  Receive Date: 20140225
  Receipt Date: 20140225
  Transmission Date: 20141002
  Serious: Yes (Other)
  Sender: FDA-Public Use
  Company Number: US-AMGEN-USASP2013070593

PATIENT
  Age: 58 Year
  Sex: Female

DRUGS (2)
  1. ENBREL [Suspect]
     Indication: RHEUMATOID ARTHRITIS
     Dosage: 50 MG, QWK
     Route: 058
     Dates: start: 20130905
  2. ENBREL [Suspect]
     Dosage: UNK
     Route: 065

REACTIONS (4)
  - Tooth infection [Recovered/Resolved]
  - Bone disorder [Unknown]
  - Swelling face [Recovering/Resolving]
  - Muscle spasms [Recovered/Resolved]
